FAERS Safety Report 25392015 (Version 1)
Quarter: 2025Q2

REPORT INFORMATION
  Report Type: Spontaneous
  Country: US (occurrence: US)
  Receive Date: 20250603
  Receipt Date: 20250603
  Transmission Date: 20250716
  Serious: No
  Sender: Thea Pharma
  Company Number: US-THEA-2025000200

PATIENT

DRUGS (1)
  1. AZASITE [Suspect]
     Active Substance: AZITHROMYCIN MONOHYDRATE
     Indication: Ocular rosacea
     Route: 047

REACTIONS (2)
  - Off label use [Unknown]
  - Product use in unapproved indication [Unknown]
